FAERS Safety Report 4277457-2 (Version None)
Quarter: 2004Q1

REPORT INFORMATION
  Report Type: 
  Country: None (occurrence: None)
  Receive Date: 20040121
  Receipt Date: 20040121
  Transmission Date: 20041129
  Serious: Yes (Hospitalization)
  Sender: FDA-Public Use
  Company Number: None

PATIENT
  Age: 72 Year
  Sex: Male
  Weight: 80.7403 kg

DRUGS (10)
  1. ETHYOL [Suspect]
     Indication: APTYALISM
     Dosage: 500 MG DAILY X 5 D SUBCUTANEOUS
     Route: 058
     Dates: start: 20031010, end: 20040115
  2. ETHYOL [Suspect]
     Indication: PROPHYLAXIS
     Dosage: 500 MG DAILY X 5 D SUBCUTANEOUS
     Route: 058
     Dates: start: 20031010, end: 20040115
  3. CARBOPLATIN [Suspect]
     Indication: CARCINOMA
     Dosage: AUC 2 WEEKLY INTRAVENOUS
     Route: 042
     Dates: start: 20031010, end: 20040105
  4. DIFLUCAN [Concomitant]
  5. DURAGESIC [Concomitant]
  6. COMPAZINE [Concomitant]
  7. CELEBREX [Concomitant]
  8. LACTULOSE [Concomitant]
  9. JEVITY [Concomitant]
  10. AMBIEN [Concomitant]

REACTIONS (6)
  - DEHYDRATION [None]
  - DYSPHAGIA [None]
  - HYPONATRAEMIA [None]
  - LEUKOCYTOSIS [None]
  - MUCOSAL INFLAMMATION [None]
  - ORAL CANDIDIASIS [None]
